FAERS Safety Report 21695486 (Version 1)
Quarter: 2022Q4

REPORT INFORMATION
  Report Type: Spontaneous
  Country: US (occurrence: US)
  Receive Date: 20221207
  Receipt Date: 20221207
  Transmission Date: 20230112
  Serious: No
  Sender: FDA-Public Use
  Company Number: US-BRISTOL-MYERS SQUIBB COMPANY-2022-149490

PATIENT
  Age: 81 Year
  Sex: Female
  Weight: 80.29 kg

DRUGS (1)
  1. REVLIMID [Suspect]
     Active Substance: LENALIDOMIDE
     Indication: Plasma cell myeloma
     Dosage: FREQUENCY: DAILY 1-21, THEN 7 DAYS OFF
     Route: 048
     Dates: start: 20210801

REACTIONS (1)
  - Monoclonal immunoglobulin present [Not Recovered/Not Resolved]
